FAERS Safety Report 9403085 (Version 3)
Quarter: 2014Q1

REPORT INFORMATION
  Report Type: Spontaneous
  Country: US (occurrence: US)
  Receive Date: 20130716
  Receipt Date: 20140206
  Transmission Date: 20141002
  Serious: Yes (Hospitalization)
  Sender: FDA-Public Use
  Company Number: US-GLAXOSMITHKLINE-A1033335A

PATIENT
  Age: 45 Year
  Sex: Female

DRUGS (14)
  1. AVANDIA [Suspect]
     Indication: DIABETES MELLITUS
     Dosage: 8MG SINGLE DOSE
     Route: 048
     Dates: start: 2000, end: 200710
  2. ZOCOR [Concomitant]
  3. CLONIDINE [Concomitant]
  4. LABETALOL [Concomitant]
  5. ACCUPRIL [Concomitant]
  6. PROCARDIA [Concomitant]
  7. LANTUS [Concomitant]
  8. NITROSTAT [Concomitant]
  9. METOPROLOL [Concomitant]
  10. HYDRALAZINE [Concomitant]
  11. CLONIDINE [Concomitant]
  12. DIOVAN HCT [Concomitant]
  13. ULTRAM [Concomitant]
  14. LORTAB [Concomitant]

REACTIONS (3)
  - Myocardial infarction [Not Recovered/Not Resolved]
  - Coronary artery disease [Unknown]
  - Coronary artery bypass [Unknown]
